FAERS Safety Report 9987492 (Version 2)
Quarter: 2014Q1

REPORT INFORMATION
  Report Type: Spontaneous
  Country: US (occurrence: US)
  Receive Date: 20140307
  Receipt Date: 20140307
  Transmission Date: 20141002
  Serious: No
  Sender: FDA-Public Use
  Company Number: US-AMGEN-USASP2013079407

PATIENT
  Age: 35 Year
  Sex: Female
  Weight: 48.98 kg

DRUGS (6)
  1. ENBREL [Suspect]
     Indication: RHEUMATOID ARTHRITIS
     Dosage: 25 MG, 2 TIMES/WK
     Route: 065
     Dates: start: 2001
  2. ENBREL [Suspect]
     Indication: JUVENILE IDIOPATHIC ARTHRITIS
  3. PREDNISONE [Concomitant]
     Indication: RHEUMATOID ARTHRITIS
     Dosage: 5 MG, QD
     Route: 048
     Dates: start: 200402
  4. PRENATAL VITAMINS                  /02014401/ [Concomitant]
     Indication: PREGNANCY
     Dosage: UNK UNK, QD
     Route: 048
     Dates: start: 2004
  5. CALCIUM + VITAMIN D3 [Concomitant]
     Indication: BONE DENSITY ABNORMAL
     Dosage: 600 MG/400 IU, QD
     Route: 048
     Dates: start: 1996
  6. DHA [Concomitant]
     Indication: PREGNANCY
     Dosage: 200 MG, QD
     Route: 048
     Dates: start: 2004, end: 201302

REACTIONS (1)
  - Sinusitis [Unknown]
